FAERS Safety Report 8902909 (Version 2)
Quarter: 2013Q4

REPORT INFORMATION
  Report Type: Spontaneous
  Country: US (occurrence: US)
  Receive Date: 20121113
  Receipt Date: 20131211
  Transmission Date: 20140711
  Serious: Yes (Other)
  Sender: FDA-Public Use
  Company Number: US-ASTRAZENECA-2012SE82262

PATIENT
  Age: 56 Year
  Sex: Female
  Weight: 59 kg

DRUGS (14)
  1. NEXIUM [Suspect]
     Indication: GASTROOESOPHAGEAL REFLUX DISEASE
     Route: 048
     Dates: start: 201107
  2. NEXIUM [Suspect]
     Indication: GASTROOESOPHAGEAL REFLUX DISEASE
     Route: 048
     Dates: start: 2012
  3. LISINOPRIL [Suspect]
     Indication: BLOOD PRESSURE ABNORMAL
     Route: 048
     Dates: start: 201107
  4. OMEPRAZOLE [Suspect]
     Route: 048
  5. CRESTOR [Suspect]
     Route: 048
     Dates: end: 201311
  6. PLAVIX [Concomitant]
     Indication: ISCHAEMIC HEART DISEASE PROPHYLAXIS
     Dates: start: 201107
  7. EFFIENT [Concomitant]
     Indication: ISCHAEMIC HEART DISEASE PROPHYLAXIS
  8. BABY ASPIRINS [Concomitant]
     Indication: ISCHAEMIC HEART DISEASE PROPHYLAXIS
     Dates: start: 201107
  9. BABY ASPIRINS [Concomitant]
     Indication: ISCHAEMIC HEART DISEASE PROPHYLAXIS
  10. CILEXA [Concomitant]
     Indication: STRESS
     Dates: start: 201107
  11. ISOSORBIDE [Concomitant]
     Dates: start: 201107
  12. PRAVASTATIN [Concomitant]
     Indication: BLOOD CHOLESTEROL ABNORMAL
     Dates: start: 201107
  13. METOPROLOL TARTRATE [Concomitant]
     Route: 048
     Dates: start: 201107
  14. AMLODIPINE [Concomitant]
     Dates: start: 201107

REACTIONS (9)
  - Myocardial infarction [Unknown]
  - Contusion [Unknown]
  - Chest discomfort [Recovered/Resolved]
  - Burning sensation [Not Recovered/Not Resolved]
  - Dyspepsia [Recovered/Resolved]
  - Diabetes mellitus [Recovered/Resolved]
  - Drug ineffective [Unknown]
  - Off label use [Unknown]
  - Drug dose omission [Not Recovered/Not Resolved]
